FAERS Safety Report 4666998-1 (Version None)
Quarter: 2005Q2

REPORT INFORMATION
  Report Type: 
  Country: None (occurrence: None)
  Receive Date: 20050520
  Receipt Date: 20040708
  Transmission Date: 20051028
  Serious: Yes (Other)
  Sender: FDA-Public Use
  Company Number: PHEH2004US07398

PATIENT
  Age: 64 Year
  Sex: Male
  Weight: 87 kg

DRUGS (11)
  1. AREDIA [Suspect]
     Indication: MULTIPLE MYELOMA
     Dosage: 90 MG, QMO
     Route: 042
     Dates: start: 20020520, end: 20040601
  2. DECADRON [Concomitant]
     Dosage: 5 TABS X 3DAYS Q28 DAYS
     Dates: start: 20010211
  3. DECADRON [Concomitant]
     Dosage: 3 TABS X 1 DAY Q28DAYS
  4. DECADRON [Concomitant]
     Dosage: 1 TABX 5 DAYS Q28DAYS
  5. ADVIL [Concomitant]
     Indication: BONE PAIN
     Dosage: UNK, PRN
  6. SYNTHROID [Concomitant]
     Indication: HYPOTHYROIDISM
     Dosage: .15 MG, QD
  7. MINOCYCLINE HCL [Concomitant]
     Indication: ACNE
  8. BOTOX [Concomitant]
     Indication: TORTICOLLIS
     Dosage: Q 4 MONTHS
  9. AMBIEN [Concomitant]
  10. ATIVAN [Concomitant]
     Indication: NAUSEA
     Dosage: UNK, PRN
  11. METROCREAM [Concomitant]
     Indication: RASH

REACTIONS (6)
  - DENTAL CARIES [None]
  - ENDODONTIC PROCEDURE [None]
  - MYALGIA [None]
  - MYOSITIS [None]
  - OSTEONECROSIS [None]
  - PAIN IN JAW [None]
